FAERS Safety Report 14345803 (Version 2)
Quarter: 2018Q1

REPORT INFORMATION
  Report Type: Spontaneous
  Country: US (occurrence: US)
  Receive Date: 20180103
  Receipt Date: 20180105
  Transmission Date: 20180509
  Serious: No
  Sender: FDA-Public Use
  Company Number: US-PFIZER INC-2018002200

PATIENT
  Age: 64 Year
  Sex: Female

DRUGS (15)
  1. POLYMYXIN [Suspect]
     Active Substance: POLYMYXIN
     Dosage: UNK
  2. NOVOCAINE [Suspect]
     Active Substance: PROCAINE
     Dosage: UNK
  3. ELAVIL [Suspect]
     Active Substance: AMITRIPTYLINE HYDROCHLORIDE
     Dosage: UNK
  4. FLEXERIL [Suspect]
     Active Substance: CYCLOBENZAPRINE HYDROCHLORIDE
     Dosage: UNK
  5. ULTRAM [Suspect]
     Active Substance: TRAMADOL HYDROCHLORIDE
     Dosage: UNK
  6. DILANTIN [Suspect]
     Active Substance: PHENYTOIN
     Dosage: UNK
  7. CYMBALTA [Suspect]
     Active Substance: DULOXETINE HYDROCHLORIDE
     Dosage: UNK
  8. CELEXA [Suspect]
     Active Substance: CITALOPRAM HYDROBROMIDE
     Dosage: UNK
  9. CELEBREX [Suspect]
     Active Substance: CELECOXIB
     Dosage: UNK
  10. EPINEPHRINE. [Suspect]
     Active Substance: EPINEPHRINE
     Dosage: UNK
  11. AMBIEN [Suspect]
     Active Substance: ZOLPIDEM TARTRATE
     Dosage: UNK
  12. GABAPENTIN. [Suspect]
     Active Substance: GABAPENTIN
     Dosage: UNK
  13. DIGOXIN. [Suspect]
     Active Substance: DIGOXIN
     Dosage: UNK
  14. SOMA [Suspect]
     Active Substance: CARISOPRODOL
     Dosage: UNK
  15. TOPROL XL [Suspect]
     Active Substance: METOPROLOL SUCCINATE
     Dosage: UNK

REACTIONS (1)
  - Drug hypersensitivity [Unknown]
